FAERS Safety Report 7900271-0 (Version None)
Quarter: 2011Q4

REPORT INFORMATION
  Report Type: 
  Country: None (occurrence: None)
  Receive Date: 20111108
  Receipt Date: 20111028
  Transmission Date: 20120403
  Serious: Yes (Other)
  Sender: FDA-Public Use
  Company Number: DE-JNJFOC-20111008035

PATIENT
  Age: 24 Year
  Sex: Female
  Weight: 50 kg

DRUGS (5)
  1. REMICADE [Suspect]
     Route: 042
     Dates: start: 20070101, end: 20070101
  2. REMICADE [Suspect]
     Indication: CROHN'S DISEASE
     Route: 042
     Dates: start: 20110727, end: 20110727
  3. REMICADE [Suspect]
     Route: 042
     Dates: start: 20060101, end: 20060101
  4. PREDNISOLONE [Concomitant]
     Indication: CROHN'S DISEASE
     Dates: start: 20100101
  5. AZATHIOPRINE [Concomitant]
     Indication: CROHN'S DISEASE
     Dates: start: 20110625

REACTIONS (5)
  - DYSPNOEA [None]
  - CHEST PAIN [None]
  - HEPATITIS [None]
  - INFUSION RELATED REACTION [None]
  - VOMITING [None]
